FAERS Safety Report 23084512 (Version 2)
Quarter: 2023Q4

REPORT INFORMATION
  Report Type: Spontaneous
  Country: JP (occurrence: JP)
  Receive Date: 20231019
  Receipt Date: 20231208
  Transmission Date: 20240109
  Serious: Yes (Hospitalization)
  Sender: FDA-Public Use
  Company Number: JP-Eisai-202302990_LEN-RCC_P_1

PATIENT
  Sex: Female

DRUGS (4)
  1. LENVIMA [Suspect]
     Active Substance: LENVATINIB
     Indication: Renal cell carcinoma
     Route: 048
     Dates: start: 20230607, end: 202307
  2. LENVIMA [Suspect]
     Active Substance: LENVATINIB
     Route: 048
     Dates: start: 202307, end: 202307
  3. LENVIMA [Suspect]
     Active Substance: LENVATINIB
     Route: 048
     Dates: start: 20231011
  4. KEYTRUDA [Concomitant]
     Active Substance: PEMBROLIZUMAB
     Indication: Renal cell carcinoma
     Route: 042
     Dates: start: 20230607

REACTIONS (7)
  - Hyperthyroidism [Recovered/Resolved]
  - Somnolence [Recovered/Resolved]
  - Decreased appetite [Recovered/Resolved]
  - Malaise [Recovered/Resolved]
  - Hypertension [Recovered/Resolved]
  - Proteinuria [Recovered/Resolved]
  - Hepatic function abnormal [Recovered/Resolved]

NARRATIVE: CASE EVENT DATE: 20230701
